FAERS Safety Report 12500515 (Version 8)
Quarter: 2017Q1

REPORT INFORMATION
  Report Type: Spontaneous
  Country: US (occurrence: US)
  Receive Date: 20160627
  Receipt Date: 20170310
  Transmission Date: 20170428
  Serious: No
  Sender: FDA-Public Use
  Company Number: PHEH2016US015547

PATIENT
  Sex: Female
  Weight: 61.23 kg

DRUGS (5)
  1. ZOFRAN ODT [Suspect]
     Active Substance: ONDANSETRON HYDROCHLORIDE
     Indication: VOMITING IN PREGNANCY
     Route: 048
  2. ONDANSETRON [Suspect]
     Active Substance: ONDANSETRON
     Indication: VOMITING IN PREGNANCY
     Dosage: 4 MG, PRN
     Route: 048
     Dates: start: 20140220, end: 20140504
  3. ZOFRAN [Suspect]
     Active Substance: ONDANSETRON HYDROCHLORIDE
     Indication: PRODUCT USED FOR UNKNOWN INDICATION
     Dosage: 08 MG, Q8H
     Route: 048
  4. ONDANSETRON TEVA//ONDANSETRON [Suspect]
     Active Substance: ONDANSETRON
     Dosage: 04 MG, PRN
     Route: 048
     Dates: start: 20140220, end: 20140504
  5. ONDANSETRON TEVA//ONDANSETRON [Suspect]
     Active Substance: ONDANSETRON
     Indication: VOMITING IN PREGNANCY
     Dosage: 04 MG, PRN
     Route: 048
     Dates: start: 20130917, end: 20140115

REACTIONS (7)
  - Urinary tract infection [Unknown]
  - Anxiety [Unknown]
  - Product use issue [Unknown]
  - Injury [Unknown]
  - Emotional distress [Unknown]
  - Pain [Unknown]
  - Maternal exposure during pregnancy [Unknown]
